FAERS Safety Report 10885895 (Version 1)
Quarter: 2015Q1

REPORT INFORMATION
  Report Type: Spontaneous
  Country: DE (occurrence: DE)
  Receive Date: 20150304
  Receipt Date: 20150304
  Transmission Date: 20150721
  Serious: Yes (Congenital Anomaly)
  Sender: FDA-Public Use
  Company Number: DE-ASTRAZENECA-2015SE18093

PATIENT
  Age: 1 Day
  Sex: Female
  Weight: 2.8 kg

DRUGS (4)
  1. QUETIAPINE [Suspect]
     Active Substance: QUETIAPINE
     Indication: DEPRESSION
     Route: 064
     Dates: start: 20131207, end: 20140206
  2. VOMEX A [Concomitant]
     Active Substance: DIMENHYDRINATE
     Indication: VOMITING IN PREGNANCY
     Route: 064
  3. SERTRALINE [Suspect]
     Active Substance: SERTRALINE HYDROCHLORIDE
     Indication: DEPRESSION
     Route: 064
     Dates: start: 20131207, end: 20140206
  4. FOLIC ACID. [Concomitant]
     Active Substance: FOLIC ACID
     Indication: PROPHYLAXIS OF NEURAL TUBE DEFECT
     Route: 064

REACTIONS (1)
  - Teratoma benign [Recovered/Resolved with Sequelae]

NARRATIVE: CASE EVENT DATE: 20140829
